FAERS Safety Report 8976999 (Version 1)
Quarter: 2012Q4

REPORT INFORMATION
  Report Type: 
  Country: US (occurrence: US)
  Receive Date: 20121220
  Receipt Date: 20121220
  Transmission Date: 20130627
  Serious: Yes (Other)
  Sender: FDA-Public Use
  Company Number: US-GLAXOSMITHKLINE-A0981551A

PATIENT
  Sex: Female

DRUGS (18)
  1. SORIATANE [Suspect]
     Indication: PSORIASIS
     Dosage: 25MG Per day
     Route: 048
     Dates: start: 1996
  2. ENBREL [Concomitant]
  3. KLOR-CON [Concomitant]
  4. ACTOS [Concomitant]
  5. GABAPENTIN [Concomitant]
  6. OXYBUTYNIN [Concomitant]
  7. ETODOLAC [Concomitant]
  8. ASPIRIN [Concomitant]
  9. MUCINEX [Concomitant]
  10. DIGOXIN [Concomitant]
  11. FERROUS SULFATE [Concomitant]
  12. FUROSEMIDE [Concomitant]
  13. PAROXETINE [Concomitant]
  14. DILTIAZEM [Concomitant]
  15. PRAVASTATIN [Concomitant]
  16. FLUCONAZOLE [Concomitant]
  17. METFORMIN [Concomitant]
  18. OMEPRAZOLE [Concomitant]

REACTIONS (4)
  - Skin atrophy [Unknown]
  - Dry skin [Unknown]
  - Skin exfoliation [Unknown]
  - Paraesthesia [Unknown]
